FAERS Safety Report 8396742-6 (Version None)
Quarter: 2012Q2

REPORT INFORMATION
  Report Type: 
  Country: None (occurrence: None)
  Receive Date: 20120530
  Receipt Date: 20120517
  Transmission Date: 20120825
  Serious: No
  Sender: FDA-Public Use
  Company Number: US-ASTRAZENECA-2012SE32176

PATIENT
  Age: 80 Year
  Sex: Female

DRUGS (3)
  1. HYDROCODONE BITARTRATE [Concomitant]
  2. NEXIUM [Suspect]
     Route: 048
  3. GABAPENTIN [Concomitant]

REACTIONS (3)
  - SOMNOLENCE [None]
  - PERIPHERAL COLDNESS [None]
  - PARAESTHESIA [None]
